FAERS Safety Report 8605052-0 (Version None)
Quarter: 2012Q3

REPORT INFORMATION
  Report Type: 
  Country: None (occurrence: None)
  Receive Date: 20120820
  Receipt Date: 20120816
  Transmission Date: 20120928
  Serious: Yes (Other)
  Sender: FDA-Public Use
  Company Number: PHHY2012CA069476

PATIENT
  Sex: Female

DRUGS (10)
  1. PRIMIDONE [Concomitant]
     Dosage: 0.5 DF, UNK
     Route: 048
  2. ZOLEDRONOC ACID [Suspect]
     Indication: OSTEOPOROSIS
     Route: 042
     Dates: start: 20111103
  3. SYNTHROID [Concomitant]
     Dosage: 88 MG, UNK
     Route: 048
  4. DOMPERIDONE [Concomitant]
     Dosage: 10 UG, BID
     Route: 048
  5. ESCITALOPRAM [Concomitant]
     Dosage: 20 MG, QD
     Route: 048
  6. CRESTOR [Concomitant]
     Dosage: 10 MG, QD
     Route: 048
  7. PANTOPRAZOLE [Concomitant]
     Dosage: 40 UG, UNK
     Route: 048
  8. ADAVIN [Concomitant]
     Dosage: 500 MG, BID
  9. DAXAS [Concomitant]
     Dosage: 500 UG, UNK
     Route: 048
  10. SPIRIVA [Concomitant]

REACTIONS (3)
  - CALCULUS URETERIC [None]
  - FLANK PAIN [None]
  - NEPHROLITHIASIS [None]
